FAERS Safety Report 19574263 (Version 3)
Quarter: 2025Q3

REPORT INFORMATION
  Report Type: Spontaneous
  Country: CA (occurrence: CA)
  Receive Date: 20210719
  Receipt Date: 20250809
  Transmission Date: 20251021
  Serious: Yes (Other)
  Sender: ALEXION PHARMACEUTICALS
  Company Number: 2021A619024

PATIENT
  Age: 77 Year
  Sex: Female

DRUGS (1)
  1. ROSUVASTATIN [Suspect]
     Active Substance: ROSUVASTATIN
     Indication: Blood cholesterol increased
     Dosage: 20 MILLIGRAM, QD
     Dates: start: 20210211, end: 20210225

REACTIONS (11)
  - Back pain [Unknown]
  - Chest pain [Unknown]
  - Chromaturia [Unknown]
  - Dyspepsia [Unknown]
  - Dyspnoea [Unknown]
  - Pyrexia [Unknown]
  - Traumatic lung injury [Unknown]
  - Abdominal discomfort [Unknown]
  - Arthralgia [Unknown]
  - Myalgia [Unknown]
  - Nausea [Unknown]

NARRATIVE: CASE EVENT DATE: 20210215
